FAERS Safety Report 19447560 (Version 1)
Quarter: 2021Q2

REPORT INFORMATION
  Report Type: Spontaneous
  Country: US (occurrence: US)
  Receive Date: 20210622
  Receipt Date: 20210622
  Transmission Date: 20210717
  Serious: No
  Sender: FDA-Public Use
  Company Number: None

PATIENT
  Age: 50 Year
  Sex: Female
  Weight: 59.85 kg

DRUGS (6)
  1. NAPROXEN. [Concomitant]
     Active Substance: NAPROXEN
  2. BIOMEGA [Concomitant]
     Active Substance: CAPSAICIN
  3. PREDNISOLONE EYE DROPS [Concomitant]
     Active Substance: PREDNISOLONE
  4. VITAMIN D [Concomitant]
     Active Substance: VITAMIN D NOS
  5. GADOLINIUM [Suspect]
     Active Substance: GADOLINIUM
     Indication: MAGNETIC RESONANCE IMAGING
     Dosage: ?          OTHER FREQUENCY:ONE TIME ONLY;?
     Route: 042
     Dates: start: 20191119, end: 20191119
  6. COLLAGEN [Concomitant]
     Active Substance: COLLAGEN

REACTIONS (2)
  - Heart rate increased [None]
  - Hypothyroidism [None]

NARRATIVE: CASE EVENT DATE: 20200301
